FAERS Safety Report 16639931 (Version 1)
Quarter: 2019Q3

REPORT INFORMATION
  Report Type: Spontaneous
  Country: GB (occurrence: GB)
  Receive Date: 20190727
  Receipt Date: 20190727
  Transmission Date: 20191004
  Serious: Yes (Disabling)
  Sender: FDA-Public Use
  Company Number: GB-ACCORD-149144

PATIENT
  Age: 76 Year
  Sex: Female
  Weight: 78 kg

DRUGS (14)
  1. HYPROMELLOSE/HYPROMELLOSE PHTHALATE [Concomitant]
     Dates: start: 20190103
  2. LEVOTHYROXINE. [Concomitant]
     Active Substance: LEVOTHYROXINE
     Dosage: EACH MORNING
     Dates: start: 20181017
  3. MEBEVERINE [Concomitant]
     Active Substance: MEBEVERINE
     Dates: start: 20181017
  4. MOVICOL [Concomitant]
     Active Substance: POLYETHYLENE GLYCOL 3350\POTASSIUM CHLORIDE\SODIUM BICARBONATE\SODIUM CHLORIDE
     Dosage: USE AS DIRECTED
     Dates: start: 20180629
  5. PARACETAMOL [Concomitant]
     Active Substance: ACETAMINOPHEN
     Indication: PAIN
     Dosage: MAXIMUM 8
     Dates: start: 20100603
  6. LISINOPRIL. [Concomitant]
     Active Substance: LISINOPRIL
     Dates: start: 20181017
  7. SIMVASTATIN. [Concomitant]
     Active Substance: SIMVASTATIN
     Dosage: AT NIGHT
     Dates: start: 20181017
  8. HYDROXYCHLOROQUINE [Concomitant]
     Active Substance: HYDROXYCHLOROQUINE
     Dates: start: 20190103
  9. GLANDOSANE [Concomitant]
     Active Substance: CALCIUM\CARBOXYMETHYLCELLULOSE\DEVICE\MAGNESIUM\POTASSIUM\SODIUM CL\SORBITOL
     Indication: DRY MOUTH
     Dosage: USE AS DIRECTED
     Dates: start: 20181017
  10. CETIRIZINE [Concomitant]
     Active Substance: CETIRIZINE HYDROCHLORIDE
     Dates: start: 20181017
  11. CHLORAMPHENICOL [Concomitant]
     Active Substance: CHLORAMPHENICOL
     Dosage: APPLY TO THE AFFECTED EYE(S)
     Route: 050
     Dates: start: 20190528
  12. DOXAZOSIN [Suspect]
     Active Substance: DOXAZOSIN MESYLATE
     Indication: PRODUCT USED FOR UNKNOWN INDICATION
     Dates: start: 20190301
  13. OMEPRAZOLE. [Concomitant]
     Active Substance: OMEPRAZOLE
     Indication: HYPERCHLORHYDRIA
     Dates: start: 20190416
  14. ZEMTARD MR [Concomitant]
     Dates: start: 20181017

REACTIONS (2)
  - Diarrhoea [Recovered/Resolved]
  - Malaise [Unknown]
